FAERS Safety Report 9294129 (Version 1)
Quarter: 2013Q2

REPORT INFORMATION
  Report Type: Spontaneous
  Country: VE (occurrence: VE)
  Receive Date: 20130517
  Receipt Date: 20130517
  Transmission Date: 20140414
  Serious: Yes (Other)
  Sender: FDA-Public Use
  Company Number: VE-ROCHE-1224429

PATIENT
  Age: 42 Year
  Sex: Female

DRUGS (2)
  1. MABTHERA [Suspect]
     Indication: NON-HODGKIN^S LYMPHOMA
     Route: 041
     Dates: start: 201111, end: 201207
  2. MABTHERA [Suspect]
     Route: 041
     Dates: start: 201206, end: 201302

REACTIONS (1)
  - Breast cyst [Not Recovered/Not Resolved]
